FAERS Safety Report 6156660-0 (Version None)
Quarter: 2009Q2

REPORT INFORMATION
  Report Type: 
  Country: None (occurrence: None)
  Receive Date: 20090416
  Receipt Date: 20090413
  Transmission Date: 20091009
  Serious: Yes (Other)
  Sender: FDA-Public Use
  Company Number: US-ASTRAZENECA-2009UW09214

PATIENT
  Age: 75 Year
  Sex: Female
  Weight: 63.5 kg

DRUGS (8)
  1. SYMBICORT [Suspect]
     Indication: CHRONIC OBSTRUCTIVE PULMONARY DISEASE
     Dosage: 640MCG TOTAL DAILY DOSE
     Route: 055
     Dates: start: 20090101, end: 20090401
  2. ATENOLOL [Concomitant]
     Indication: BLOOD PRESSURE
     Route: 048
  3. THEOPHYLLINE [Concomitant]
  4. NIFEDICAL [Concomitant]
  5. ISOSORB [Concomitant]
  6. HYDROCHLOROT [Concomitant]
     Indication: FLUID REPLACEMENT
  7. CITAROPLION [Concomitant]
     Indication: DEPRESSION
  8. VITAMINS [Concomitant]

REACTIONS (7)
  - APHONIA [None]
  - BLOOD PRESSURE INCREASED [None]
  - DEHYDRATION [None]
  - DIZZINESS [None]
  - NAUSEA [None]
  - TREMOR [None]
  - WEIGHT DECREASED [None]
